FAERS Safety Report 17057769 (Version 1)
Quarter: 2019Q4

REPORT INFORMATION
  Report Type: Spontaneous
  Country: US (occurrence: US)
  Receive Date: 20191120
  Receipt Date: 20191120
  Transmission Date: 20200122
  Serious: Yes (Other)
  Sender: FDA-Public Use
  Company Number: None

PATIENT
  Age: 85 Year
  Sex: Female
  Weight: 74.25 kg

DRUGS (8)
  1. BETOPTIC S [Suspect]
     Active Substance: BETAXOLOL HYDROCHLORIDE
     Indication: GLAUCOMA
     Dosage: ?          OTHER STRENGTH:0.25;QUANTITY:1 DROP(S);?
     Route: 047
     Dates: start: 20191021, end: 20191104
  2. TIMOLOL. [Concomitant]
     Active Substance: TIMOLOL
  3. VALSARTAN. [Concomitant]
     Active Substance: VALSARTAN
  4. PRESERVISION [Concomitant]
     Active Substance: MINERALS\VITAMINS
  5. YUVAFEM [Concomitant]
     Active Substance: ESTRADIOL HEMIHYDRATE
  6. MULTI VITAMIN [Concomitant]
     Active Substance: VITAMINS
  7. AMLODIPINE [Concomitant]
     Active Substance: AMLODIPINE BESYLATE
  8. LATANAPROST [Concomitant]
     Active Substance: LATANOPROST

REACTIONS (2)
  - Intraocular pressure increased [None]
  - Paradoxical drug reaction [None]

NARRATIVE: CASE EVENT DATE: 20191111
